FAERS Safety Report 5054941-5 (Version None)
Quarter: 2006Q3

REPORT INFORMATION
  Report Type: 
  Country: None (occurrence: None)
  Receive Date: 20060717
  Receipt Date: 20060706
  Transmission Date: 20061208
  Serious: Yes (Life-Threatening)
  Sender: FDA-Public Use
  Company Number: 06H-163-0308702-00

PATIENT

DRUGS (2)
  1. MAGNESIUM SULFATE [Suspect]
  2. BERACTANT [Concomitant]

REACTIONS (4)
  - DRUG EXPOSURE DURING PREGNANCY [None]
  - NEONATAL DISORDER [None]
  - PULMONARY INTERSTITIAL EMPHYSEMA SYNDROME [None]
  - SMALL FOR DATES BABY [None]
